FAERS Safety Report 24173454 (Version 1)
Quarter: 2024Q3

REPORT INFORMATION
  Report Type: Spontaneous
  Country: AU (occurrence: AU)
  Receive Date: 20240805
  Receipt Date: 20240805
  Transmission Date: 20241016
  Serious: Yes (Death, Other)
  Sender: NOVO NORDISK
  Company Number: AU-NOVOPROD-1261729

PATIENT
  Sex: Male

DRUGS (1)
  1. OZEMPIC [Suspect]
     Active Substance: SEMAGLUTIDE
     Indication: Weight control
     Dosage: UNK

REACTIONS (5)
  - Completed suicide [Fatal]
  - Suicidal ideation [Unknown]
  - Panic attack [Unknown]
  - Anxiety [Unknown]
  - Off label use [Recovered/Resolved]
